FAERS Safety Report 5629764-6 (Version None)
Quarter: 2008Q1

REPORT INFORMATION
  Report Type: 
  Country: None (occurrence: None)
  Receive Date: 20080218
  Receipt Date: 20080211
  Transmission Date: 20080703
  Serious: Yes (Other)
  Sender: FDA-Public Use
  Company Number: US-ASTRAZENECA-2008AC00440

PATIENT
  Age: 66 Year
  Sex: Female

DRUGS (3)
  1. LISINOPRIL [Suspect]
     Indication: HYPERTENSION
  2. SODIUM PHOSPHATES [Suspect]
     Route: 048
  3. HYDROCHLOROTHIAZIDE [Suspect]
     Indication: HYPERTENSION

REACTIONS (1)
  - NEPHROPATHY [None]
